APPROVED DRUG PRODUCT: METFORMIN HYDROCHLORIDE
Active Ingredient: METFORMIN HYDROCHLORIDE
Strength: 500MG
Dosage Form/Route: TABLET;ORAL
Application: A077711 | Product #001
Applicant: TORRENT PHARMACEUTICALS LTD
Approved: Jan 24, 2007 | RLD: No | RS: No | Type: DISCN